FAERS Safety Report 13141896 (Version 1)
Quarter: 2017Q1

REPORT INFORMATION
  Report Type: Spontaneous
  Country: PT (occurrence: PT)
  Receive Date: 20170124
  Receipt Date: 20170124
  Transmission Date: 20170428
  Serious: Yes (Other)
  Sender: FDA-Public Use
  Company Number: PT-PFIZER INC-2017023478

PATIENT
  Age: 71 Year
  Sex: Female

DRUGS (1)
  1. SALAZOPIRINA EN [Suspect]
     Active Substance: SULFASALAZINE
     Indication: JUVENILE IDIOPATHIC ARTHRITIS
     Dosage: 1 DF, UNK
     Dates: start: 20160408

REACTIONS (1)
  - Respiratory tract infection bacterial [Unknown]

NARRATIVE: CASE EVENT DATE: 20161212
